FAERS Safety Report 18207152 (Version 5)
Quarter: 2020Q4

REPORT INFORMATION
  Report Type: Spontaneous
  Country: US (occurrence: US)
  Receive Date: 20200828
  Receipt Date: 20201210
  Transmission Date: 20210113
  Serious: No
  Sender: FDA-Public Use
  Company Number: US-GLAXOSMITHKLINE-US2020AMR171032

PATIENT
  Sex: Female

DRUGS (4)
  1. LISINOPRIL. [Concomitant]
     Active Substance: LISINOPRIL
     Indication: PRODUCT USED FOR UNKNOWN INDICATION
     Dosage: UNK
  2. ZEJULA [Suspect]
     Active Substance: NIRAPARIB
     Indication: OVARIAN CANCER
     Dosage: 200 MG, QD
     Route: 065
     Dates: start: 20200814
  3. ZEJULA [Suspect]
     Active Substance: NIRAPARIB
     Dosage: 200 MG, QD
     Route: 065
     Dates: end: 20201002
  4. ZEJULA [Suspect]
     Active Substance: NIRAPARIB
     Dosage: 200 MG, QD

REACTIONS (8)
  - Anxiety [Not Recovered/Not Resolved]
  - Immune system disorder [Unknown]
  - Nausea [Recovered/Resolved]
  - Headache [Unknown]
  - Constipation [Not Recovered/Not Resolved]
  - Fatigue [Unknown]
  - Blood pressure increased [Not Recovered/Not Resolved]
  - Mood altered [Unknown]
